FAERS Safety Report 10569201 (Version 4)
Quarter: 2015Q1

REPORT INFORMATION
  Report Type: Report from Study
  Country: JP (occurrence: JP)
  Receive Date: 20141106
  Receipt Date: 20150330
  Transmission Date: 20150720
  Serious: Yes (Hospitalization, Other)
  Sender: FDA-Public Use
  Company Number: JP-BAYER-2014-059934

PATIENT
  Age: 76 Year
  Sex: Male
  Weight: 61 kg

DRUGS (3)
  1. STIVARGA [Suspect]
     Active Substance: REGORAFENIB
     Indication: RECTAL CANCER
     Dosage: FIRST CYCLE IS 160 MG/DAY ON FOR 3 WEEKS AND OFF FOR 1 WEEK
     Route: 048
     Dates: start: 20131113, end: 20131203
  2. STIVARGA [Suspect]
     Active Substance: REGORAFENIB
     Indication: RECTAL CANCER
     Dosage: SECOND CYCLE IS 80 MG/DAY ON FOR 1 WEEK
     Route: 048
     Dates: start: 20131218, end: 20131224
  3. STIVARGA [Suspect]
     Active Substance: REGORAFENIB
     Indication: RECTAL CANCER
     Dosage: 80 MG, QD (THIRD CYCLE IS 80 MG/DAY, ON FOR 3 WEEKS AND OFF FOR 1 WEEK)
     Route: 048
     Dates: start: 20140408

REACTIONS (3)
  - Pulmonary tuberculosis [Recovering/Resolving]
  - Platelet count decreased [Recovered/Resolved]
  - Hepatic function abnormal [Recovered/Resolved]

NARRATIVE: CASE EVENT DATE: 20131119
